FAERS Safety Report 17824665 (Version 1)
Quarter: 2020Q2

REPORT INFORMATION
  Report Type: Spontaneous
  Country: SK (occurrence: SK)
  Receive Date: 20200526
  Receipt Date: 20200526
  Transmission Date: 20200714
  Serious: Yes (Hospitalization, Other)
  Sender: FDA-Public Use
  Company Number: SK-SA-2020SA052388

PATIENT
  Age: 52 Year
  Sex: Female
  Weight: 70 kg

DRUGS (3)
  1. BETAFERON [Concomitant]
     Active Substance: INTERFERON BETA-1B
     Indication: MULTIPLE SCLEROSIS
     Dosage: UNK
     Dates: start: 20150323, end: 20170926
  2. AUBAGIO [Suspect]
     Active Substance: TERIFLUNOMIDE
     Dosage: 1 DF, QD
     Dates: start: 2019, end: 20191110
  3. AUBAGIO [Suspect]
     Active Substance: TERIFLUNOMIDE
     Indication: MULTIPLE SCLEROSIS
     Dosage: UNK UNK, QD
     Route: 048
     Dates: start: 20171003

REACTIONS (11)
  - Quadriparesis [Unknown]
  - Multiple sclerosis [Unknown]
  - Muscular weakness [Unknown]
  - Cranial nerve disorder [Unknown]
  - Hypoaesthesia [Unknown]
  - Gait disturbance [Unknown]
  - Visual impairment [Unknown]
  - Paraesthesia [Unknown]
  - Multiple sclerosis relapse [Recovered/Resolved with Sequelae]
  - Hemiplegia [Unknown]
  - Ophthalmoplegia [Unknown]

NARRATIVE: CASE EVENT DATE: 2018
